FAERS Safety Report 4315588-9 (Version None)
Quarter: 2004Q1

REPORT INFORMATION
  Report Type: 
  Country: None (occurrence: None)
  Receive Date: 20040311
  Receipt Date: 20040311
  Transmission Date: 20041129
  Serious: Yes (Other)
  Sender: FDA-Public Use
  Company Number: None

PATIENT
  Age: 39 Year
  Sex: Female
  Weight: 61.2356 kg

DRUGS (1)
  1. CARBAMIDE DEN MAT WHITENING TECHNIQUE [Suspect]
     Indication: TOOTH DISCOLOURATION
     Dosage: ONE HOUR EXPOSURE CARBAMIDE PLUS LIGHT

REACTIONS (5)
  - DRUG HYPERSENSITIVITY [None]
  - GINGIVAL DISORDER [None]
  - PHARMACEUTICAL PRODUCT COMPLAINT [None]
  - SWELLING FACE [None]
  - THERMAL BURN [None]
